FAERS Safety Report 12202468 (Version 1)
Quarter: 2016Q1

REPORT INFORMATION
  Report Type: Report from Study
  Country: FR (occurrence: FR)
  Receive Date: 20160322
  Receipt Date: 20160322
  Transmission Date: 20160526
  Serious: Yes (Death, Other)
  Sender: FDA-Public Use
  Company Number: FR-PFIZER INC-2016160381

PATIENT
  Sex: Male

DRUGS (1)
  1. TEMSIROLIMUS [Suspect]
     Active Substance: TEMSIROLIMUS
     Indication: CLEAR CELL RENAL CELL CARCINOMA
     Dosage: UNK, CYCLIC
     Route: 042

REACTIONS (2)
  - Septic shock [Fatal]
  - Asthenia [Unknown]
